FAERS Safety Report 10275408 (Version 1)
Quarter: 2014Q3

REPORT INFORMATION
  Report Type: Spontaneous
  Country: IE (occurrence: FR)
  Receive Date: 20140703
  Receipt Date: 20140703
  Transmission Date: 20150326
  Serious: Yes (Hospitalization)
  Sender: FDA-Public Use
  Company Number: 2014SP003719

PATIENT
  Age: 59 Year
  Sex: Male

DRUGS (17)
  1. IMIPENEM [Concomitant]
     Active Substance: IMIPENEM
  2. INSULIN [Concomitant]
     Active Substance: INSULIN NOS
     Dates: start: 201301
  3. BORTEZOMIB [Concomitant]
     Active Substance: BORTEZOMIB
     Indication: PLASMA CELL MYELOMA
     Dates: start: 2012, end: 2012
  4. GLIMEPIRIDE. [Concomitant]
     Active Substance: GLIMEPIRIDE
     Dates: end: 201301
  5. VANCOMYCIN [Suspect]
     Active Substance: VANCOMYCIN
     Indication: DIARRHOEA
     Route: 042
     Dates: start: 201301, end: 201301
  6. OMNIPAQUE [Suspect]
     Active Substance: IOHEXOL
     Indication: COMPUTERISED TOMOGRAM
     Route: 042
     Dates: start: 20130117, end: 20130117
  7. MELPHALAN [Concomitant]
     Active Substance: MELPHALAN
  8. PIPERACILLIN AND TAZOBACTAM [Concomitant]
     Active Substance: PIPERACILLIN SODIUM\TAZOBACTAM SODIUM
     Dates: start: 20130113
  9. COTRIMOXAZOLE [Concomitant]
     Active Substance: SULFAMETHOXAZOLE\TRIMETHOPRIM
     Route: 048
  10. AMOXICILLIN TRIHYDRATE [Concomitant]
     Active Substance: AMOXICILLIN
  11. METFORMIN HYDROCHLORIDE. [Concomitant]
     Active Substance: METFORMIN HYDROCHLORIDE
     Dates: end: 201301
  12. VALACICLOVIR HYDROCHLORIDE [Suspect]
     Active Substance: VALACYCLOVIR HYDROCHLORIDE
     Indication: PROPHYLAXIS
     Route: 048
     Dates: end: 201301
  13. LENALIDOMIDE [Concomitant]
     Active Substance: LENALIDOMIDE
     Indication: PLASMA CELL MYELOMA
     Dates: start: 2012, end: 2012
  14. CYCLOPHOSPHAMIDE. [Concomitant]
     Active Substance: CYCLOPHOSPHAMIDE
     Dates: start: 201211, end: 201311
  15. ACARBOSE. [Concomitant]
     Active Substance: ACARBOSE
     Dates: end: 201301
  16. DEXAMETHASONE. [Concomitant]
     Active Substance: DEXAMETHASONE
     Indication: PLASMA CELL MYELOMA
     Dates: start: 2012, end: 2012
  17. SIMVASTATIN. [Concomitant]
     Active Substance: SIMVASTATIN

REACTIONS (7)
  - Proteinuria [Unknown]
  - Haematuria [Unknown]
  - Renal failure acute [Recovered/Resolved]
  - Hypotension [Recovering/Resolving]
  - Colitis [Unknown]
  - Ascites [Unknown]
  - Leukocyturia [Unknown]

NARRATIVE: CASE EVENT DATE: 20130117
